FAERS Safety Report 10923977 (Version 1)
Quarter: 2015Q1

REPORT INFORMATION
  Report Type: Spontaneous
  Country: US (occurrence: None)
  Receive Date: 20150316
  Receipt Date: 20150316
  Transmission Date: 20150721
  Serious: Yes (Disabling)
  Sender: FDA-Public Use
  Company Number: None

PATIENT
  Age: 64 Year
  Sex: Female
  Weight: 58.97 kg

DRUGS (11)
  1. QUETIAPINE FUMARATE 300MG AND 400MG TABS ASCEND LAB [Suspect]
     Active Substance: QUETIAPINE FUMARATE
     Indication: INSOMNIA
     Route: 048
     Dates: start: 20150209, end: 20150211
  2. CALCIUM [Concomitant]
     Active Substance: CALCIUM
  3. MULTI-VITAMIN [Concomitant]
     Active Substance: .ALPHA.-TOCOPHEROL ACETATE, DL-\ASCORBIC ACID\CYANOCOBALAMIN\FLUORIDE ION\FOLIC ACID\NIACIN\PYRIDOXINE\RIBOFLAVIN\THIAMINE\VITAMIN A\VITAMIN D
  4. LEVOTHYROXIN [Concomitant]
     Active Substance: LEVOTHYROXINE
  5. ZOLPIDEM [Concomitant]
     Active Substance: ZOLPIDEM\ZOLPIDEM TARTRATE
  6. PROLIA [Concomitant]
     Active Substance: DENOSUMAB
  7. FLAXSEED [Concomitant]
     Active Substance: FLAX SEED
  8. NEXIUM [Concomitant]
     Active Substance: ESOMEPRAZOLE MAGNESIUM
  9. QUETIAPINE FUMARATE 300MG AND 400MG TABS ASCEND LAB [Suspect]
     Active Substance: QUETIAPINE FUMARATE
     Indication: OFF LABEL USE
     Route: 048
     Dates: start: 20150209, end: 20150211
  10. BUPROPION [Concomitant]
     Active Substance: BUPROPION
  11. VITAMIN D [Concomitant]
     Active Substance: CHOLECALCIFEROL

REACTIONS (7)
  - Mental disorder [None]
  - Middle insomnia [None]
  - Amnesia [None]
  - Dysgeusia [None]
  - Fatigue [None]
  - Dry mouth [None]
  - Insomnia [None]

NARRATIVE: CASE EVENT DATE: 20150209
